FAERS Safety Report 20916320 (Version 3)
Quarter: 2024Q1

REPORT INFORMATION
  Report Type: Spontaneous
  Country: US (occurrence: US)
  Receive Date: 20220604
  Receipt Date: 20240305
  Transmission Date: 20240409
  Serious: No
  Sender: FDA-Public Use
  Company Number: US-SA-2022SA102912

PATIENT
  Age: 50 Year
  Sex: Male

DRUGS (1)
  1. DUPIXENT [Suspect]
     Active Substance: DUPILUMAB
     Indication: Dermatitis atopic
     Dosage: 300 MG, QOW
     Route: 058

REACTIONS (9)
  - Eczema [Not Recovered/Not Resolved]
  - Product dose omission issue [Unknown]
  - Rash macular [Unknown]
  - Condition aggravated [Unknown]
  - Pruritus [Unknown]
  - Erythema [Unknown]
  - Dry skin [Unknown]
  - Stress [Unknown]
  - Exposure to extreme temperature [Unknown]

NARRATIVE: CASE EVENT DATE: 20220502
